FAERS Safety Report 8543975-1 (Version None)
Quarter: 2012Q3

REPORT INFORMATION
  Report Type: 
  Country: None (occurrence: None)
  Receive Date: 20120727
  Receipt Date: 20120720
  Transmission Date: 20120928
  Serious: Yes (Other)
  Sender: FDA-Public Use
  Company Number: TR-CELGENEUS-161-C5013-12072143

PATIENT
  Sex: Male
  Weight: 80 kg

DRUGS (5)
  1. HYDROXYUREA [Concomitant]
     Indication: SPLENOMEGALY
     Route: 065
     Dates: start: 20100520, end: 20111205
  2. UNKNOWN DRUG [Concomitant]
  3. LENALIDOMIDE [Suspect]
     Indication: MYELOFIBROSIS
     Route: 048
     Dates: start: 20111101
  4. UNKNOWN DRUG [Concomitant]
     Indication: SPLENOMEGALY
     Dosage: 800 MILLIGRAM
     Route: 065
     Dates: start: 20100112, end: 20120505
  5. HYDROXYUREA [Concomitant]

REACTIONS (1)
  - RENAL CELL CARCINOMA [None]
